FAERS Safety Report 7084337-6 (Version None)
Quarter: 2010Q4

REPORT INFORMATION
  Report Type: 
  Country: None (occurrence: None)
  Receive Date: 20101104
  Receipt Date: 20101027
  Transmission Date: 20110411
  Serious: Yes (Other)
  Sender: FDA-Public Use
  Company Number: GB-PFIZER INC-2010097879

PATIENT
  Age: 64 Year
  Sex: Male
  Weight: 90.9 kg

DRUGS (6)
  1. SUTENT [Suspect]
     Indication: RENAL CANCER
     Dosage: 50 MG, 1X/DAY
     Route: 048
     Dates: start: 20100225
  2. VENTOLIN [Concomitant]
     Indication: ASTHMA
     Dosage: UNK
     Route: 055
  3. SERETIDE [Concomitant]
     Indication: ASTHMA
     Dosage: UNK
     Route: 055
  4. DOXAZOSIN [Concomitant]
     Indication: BLOOD PRESSURE
     Dosage: 4 MG, 1X/DAY
     Route: 048
  5. BENDROFLUMETHIAZIDE [Concomitant]
     Indication: BLOOD PRESSURE
     Dosage: 25 MG, 1X/DAY
     Route: 048
  6. CO-DYDRAMOL [Concomitant]
     Indication: ANALGESIC THERAPY
     Dosage: UNK

REACTIONS (6)
  - DIARRHOEA [None]
  - EYE SWELLING [None]
  - HYPERTENSION [None]
  - JOINT SWELLING [None]
  - PERIORBITAL OEDEMA [None]
  - WEIGHT INCREASED [None]
